FAERS Safety Report 4860002-8 (Version None)
Quarter: 2005Q4

REPORT INFORMATION
  Report Type: 
  Country: None (occurrence: None)
  Receive Date: 20051219
  Receipt Date: 20051212
  Transmission Date: 20060501
  Serious: Yes (Hospitalization, Other)
  Sender: FDA-Public Use
  Company Number: US-ABBOTT-05P-163-0319257-00

PATIENT
  Sex: Female
  Weight: 90.8 kg

DRUGS (6)
  1. HUMIRA [Suspect]
     Indication: JUVENILE ARTHRITIS
     Route: 058
     Dates: start: 20030101, end: 20051128
  2. FEXOFENADINE HYDROCHLORIDE [Concomitant]
     Indication: HYPERSENSITIVITY
     Route: 048
  3. ALPRAZOLAM [Concomitant]
     Indication: ANXIETY
     Route: 048
  4. ALPRAZOLAM [Concomitant]
     Indication: PAIN
  5. LEXAPRO [Concomitant]
     Indication: DEPRESSION
     Route: 048
  6. BIRTH CONTROL PILLS [Concomitant]
     Indication: ENDOMETRIOSIS

REACTIONS (14)
  - ARTHROPATHY [None]
  - ASTHMA [None]
  - BRONCHITIS [None]
  - CELLULITIS [None]
  - CLAVICLE FRACTURE [None]
  - DERMATITIS CONTACT [None]
  - FALL [None]
  - HYPERSENSITIVITY [None]
  - JOINT DISLOCATION [None]
  - NASOPHARYNGITIS [None]
  - PYREXIA [None]
  - SINUSITIS BACTERIAL [None]
  - SWELLING FACE [None]
  - TOOTH ABSCESS [None]
